FAERS Safety Report 17188073 (Version 1)
Quarter: 2019Q4

REPORT INFORMATION
  Report Type: Spontaneous
  Country: GB (occurrence: GB)
  Receive Date: 20191221
  Receipt Date: 20191221
  Transmission Date: 20200122
  Serious: Yes (Other)
  Sender: FDA-Public Use
  Company Number: GB-ACCORD-165661

PATIENT
  Age: 74 Year
  Sex: Female
  Weight: 69 kg

DRUGS (8)
  1. HYPROMELLOSE/HYPROMELLOSE PHTHALATE [Concomitant]
     Dates: start: 20190214
  2. SIMVASTATIN. [Concomitant]
     Active Substance: SIMVASTATIN
     Dosage: AT NIGHT
     Dates: start: 20191028
  3. AMLODIPINE [Concomitant]
     Active Substance: AMLODIPINE BESYLATE
     Dates: start: 20190214
  4. ATORVASTATIN/ATORVASTATIN CALCIUM [Suspect]
     Active Substance: ATORVASTATIN CALCIUM
     Indication: PRODUCT USED FOR UNKNOWN INDICATION
     Dosage: EACH NIGHT
     Dates: start: 20190911
  5. LATANOPROST. [Concomitant]
     Active Substance: LATANOPROST
     Dosage: IN EACH EYE IN THE EVENING
     Dates: start: 20190214
  6. BECLOMETASONE [Concomitant]
     Active Substance: BECLOMETHASONE DIPROPIONATE
     Dosage: SPRAYS
     Dates: start: 20190214
  7. HYLO-FORTE [Concomitant]
     Active Substance: HYALURONATE SODIUM
     Dosage: AS DIRECTED
     Dates: start: 20190214
  8. PRAVASTATIN. [Concomitant]
     Active Substance: PRAVASTATIN
     Dosage: AT NIGHT
     Dates: start: 20191031

REACTIONS (1)
  - Eczema [Recovered/Resolved]
